FAERS Safety Report 5954444-7 (Version None)
Quarter: 2008Q4

REPORT INFORMATION
  Report Type: 
  Country: None (occurrence: None)
  Receive Date: 20081117
  Receipt Date: 20081104
  Transmission Date: 20090506
  Serious: Yes (Life-Threatening, Hospitalization, Other)
  Sender: FDA-Public Use
  Company Number: CA-ROCHE-583646

PATIENT
  Sex: Male
  Weight: 99 kg

DRUGS (2)
  1. PEG-INTERFERON ALFA 2A (RO 25-8310) [Suspect]
     Indication: HEPATITIS C
     Route: 058
     Dates: start: 20080612, end: 20080828
  2. RIBAVIRIN [Suspect]
     Indication: HEPATITIS C
     Dosage: STRENGTH REPORTED AS 200 MD
     Route: 048
     Dates: start: 20080612, end: 20080903

REACTIONS (5)
  - ABSCESS [None]
  - ELECTROCARDIOGRAM QT PROLONGED [None]
  - INTERVERTEBRAL DISCITIS [None]
  - SEPSIS [None]
  - SINUS TACHYCARDIA [None]
